FAERS Safety Report 13397559 (Version 2)
Quarter: 2017Q2

REPORT INFORMATION
  Report Type: Spontaneous
  Country: CA (occurrence: CA)
  Receive Date: 20170403
  Receipt Date: 20170418
  Transmission Date: 20170830
  Serious: Yes (Other)
  Sender: FDA-Public Use
  Company Number: CA-PFIZER INC-2017141979

PATIENT
  Age: 62 Year
  Sex: Female

DRUGS (2)
  1. OXYCOCET [Concomitant]
     Active Substance: ACETAMINOPHEN\OXYCODONE HYDROCHLORIDE
  2. XELJANZ [Suspect]
     Active Substance: TOFACITINIB CITRATE
     Indication: RHEUMATOID ARTHRITIS
     Dosage: 5 MG, 2X/DAY
     Route: 048
     Dates: start: 20170302, end: 201703

REACTIONS (3)
  - Immune system disorder [Unknown]
  - Sinusitis [Unknown]
  - Mastitis [Unknown]

NARRATIVE: CASE EVENT DATE: 201703
